FAERS Safety Report 9758830 (Version 1)
Quarter: 2013Q2

REPORT INFORMATION
  Report Type: Spontaneous
  Country: US (occurrence: None)
  Receive Date: 20130607
  Receipt Date: 20130607
  Transmission Date: 20140414
  Serious: No
  Sender: FDA-Public Use
  Company Number: TH-2013-00262

PATIENT
  Age: 45 Year
  Sex: 0

DRUGS (1)
  1. EGRIFTA [Suspect]
     Indication: PRODUCT USED FOR UNKNOWN INDICATION

REACTIONS (2)
  - Constipation [None]
  - Abdominal distension [None]
